FAERS Safety Report 24712917 (Version 1)
Quarter: 2024Q4

REPORT INFORMATION
  Report Type: Report from Study
  Country: US (occurrence: US)
  Receive Date: 20241209
  Receipt Date: 20241209
  Transmission Date: 20250114
  Serious: Yes (Other)
  Sender: UCB
  Company Number: US-UCBSA-2024063498

PATIENT
  Age: 12 Year
  Sex: Male
  Weight: 25.5 kg

DRUGS (1)
  1. FINTEPLA [Suspect]
     Active Substance: FENFLURAMINE
     Indication: Lennox-Gastaut syndrome
     Dosage: 17.6 MILLIGRAM PER DAY
     Dates: start: 202204

REACTIONS (1)
  - Aortic dilatation [Unknown]

NARRATIVE: CASE EVENT DATE: 20241104
